FAERS Safety Report 15885043 (Version 3)
Quarter: 2019Q1

REPORT INFORMATION
  Report Type: Spontaneous
  Country: JP (occurrence: JP)
  Receive Date: 20190129
  Receipt Date: 20190227
  Transmission Date: 20190417
  Serious: Yes (Other)
  Sender: FDA-Public Use
  Company Number: JP-ASTRAZENECA-2018SF50692

PATIENT
  Age: 26079 Day
  Sex: Female
  Weight: 55 kg

DRUGS (5)
  1. IMFINZI [Suspect]
     Active Substance: DURVALUMAB
     Indication: NON-SMALL CELL LUNG CANCER
     Route: 042
     Dates: start: 20181122
  2. IMFINZI [Suspect]
     Active Substance: DURVALUMAB
     Indication: NON-SMALL CELL LUNG CANCER
     Route: 042
     Dates: start: 20180905, end: 20181017
  3. PROGRAF [Concomitant]
     Active Substance: TACROLIMUS\TACROLIMUS ANHYDROUS
     Indication: DERMATOMYOSITIS
     Route: 048
     Dates: start: 2017
  4. TRAMCET [Concomitant]
     Active Substance: ACETAMINOPHEN\TRAMADOL
     Route: 048
     Dates: start: 2017
  5. CALFINA [Concomitant]
     Active Substance: ALFACALCIDOL
     Route: 048
     Dates: start: 2017

REACTIONS (5)
  - Hypoaesthesia oral [Recovered/Resolved]
  - Headache [Recovering/Resolving]
  - Off label use [Unknown]
  - Radiation pneumonitis [Recovering/Resolving]
  - Organising pneumonia [Unknown]

NARRATIVE: CASE EVENT DATE: 20180906
